FAERS Safety Report 7757495-5 (Version None)
Quarter: 2011Q3

REPORT INFORMATION
  Report Type: 
  Country: None (occurrence: None)
  Receive Date: 20110916
  Receipt Date: 20110906
  Transmission Date: 20111222
  Serious: Yes (Life-Threatening, Hospitalization, Disabling, Other)
  Sender: FDA-Public Use
  Company Number: ES-ABBOTT-11P-144-0851662-01

PATIENT
  Age: 48 Year
  Sex: Female
  Weight: 79 kg

DRUGS (9)
  1. IDEOS CALCIUM [Concomitant]
     Indication: PRODUCT USED FOR UNKNOWN INDICATION
     Route: 048
     Dates: start: 20110118, end: 20110520
  2. COLCHICINE [Concomitant]
     Indication: UVEITIS
     Route: 048
     Dates: start: 19970101
  3. IMURAN [Concomitant]
     Indication: UVEITIS
     Route: 048
     Dates: start: 20081201
  4. PREDNISONE [Concomitant]
     Route: 048
     Dates: start: 20110524
  5. OMEPRAZOLE [Concomitant]
     Indication: PRODUCT USED FOR UNKNOWN INDICATION
     Route: 048
     Dates: start: 20110118
  6. PREDNISONE [Concomitant]
     Indication: UVEITIS
     Route: 048
     Dates: start: 20110509, end: 20110515
  7. DICYCLOMINE HYDROCHLORIDE [Concomitant]
     Indication: PRODUCT USED FOR UNKNOWN INDICATION
     Route: 048
     Dates: start: 19970101
  8. HUMIRA [Suspect]
     Indication: UVEITIS
     Route: 058
     Dates: start: 20110511, end: 20110620
  9. PREDNISONE [Concomitant]
     Indication: BEHCET'S SYNDROME
     Route: 048
     Dates: start: 20110516, end: 20110523

REACTIONS (2)
  - URINARY TRACT INFECTION [None]
  - BEHCET'S SYNDROME [None]
